FAERS Safety Report 4645684-8 (Version None)
Quarter: 2005Q2

REPORT INFORMATION
  Report Type: 
  Country: None (occurrence: None)
  Receive Date: 20050331
  Receipt Date: 20050218
  Transmission Date: 20051028
  Serious: No
  Sender: FDA-Public Use
  Company Number: 05P-163-0291274-00

PATIENT
  Age: 59 Year
  Sex: Female
  Weight: 90.7194 kg

DRUGS (7)
  1. HUMIRA [Suspect]
     Indication: RHEUMATOID ARTHRITIS
     Dosage: 40 MG, 1IN 2 WK, SUBCUTANEOUS
     Route: 058
     Dates: start: 20050205
  2. METHOTREXATE [Concomitant]
  3. EICLOFENAX [Concomitant]
  4. HYDROXYCHLOROQUINE PHOSPHATE [Concomitant]
  5. ESTRADIOL [Concomitant]
  6. EROMETRIUM [Concomitant]
  7. ESOMEPRAZOLE [Concomitant]

REACTIONS (1)
  - THROAT IRRITATION [None]
